FAERS Safety Report 13701000 (Version 1)
Quarter: 2017Q2

REPORT INFORMATION
  Report Type: Spontaneous
  Country: US (occurrence: US)
  Receive Date: 20170628
  Receipt Date: 20170628
  Transmission Date: 20170830
  Serious: Yes (Death)
  Sender: FDA-Public Use
  Company Number: None

PATIENT
  Age: 55 Year
  Sex: Male
  Weight: 94.5 kg

DRUGS (1)
  1. SEROQUEL [Suspect]
     Active Substance: QUETIAPINE FUMARATE
     Indication: SCHIZOAFFECTIVE DISORDER BIPOLAR TYPE
     Dosage: AT BEDTIME ORAL
     Route: 048
     Dates: start: 20110815, end: 20161119

REACTIONS (3)
  - Dementia [None]
  - Impaired driving ability [None]
  - Completed suicide [None]

NARRATIVE: CASE EVENT DATE: 20160815
